FAERS Safety Report 23929156 (Version 1)
Quarter: 2024Q2

REPORT INFORMATION
  Report Type: Spontaneous
  Country: US (occurrence: US)
  Receive Date: 20240601
  Receipt Date: 20240601
  Transmission Date: 20240716
  Serious: No
  Sender: FDA-Public Use
  Company Number: US-P+L Developments of Newyork Corporation-2157664

PATIENT

DRUGS (1)
  1. LORATADINE [Suspect]
     Active Substance: LORATADINE
     Indication: Hypersensitivity
     Route: 065

REACTIONS (1)
  - Drug ineffective [Unknown]
